FAERS Safety Report 17973853 (Version 4)
Quarter: 2020Q3

REPORT INFORMATION
  Report Type: Spontaneous
  Country: US (occurrence: US)
  Receive Date: 20200702
  Receipt Date: 20200814
  Transmission Date: 20201103
  Serious: No
  Sender: FDA-Public Use
  Company Number: US-JNJFOC-20200638433

PATIENT
  Age: 60 Year
  Sex: Female
  Weight: 45.4 kg

DRUGS (1)
  1. TREMFYA [Suspect]
     Active Substance: GUSELKUMAB
     Indication: PSORIASIS
     Route: 058

REACTIONS (5)
  - Product use issue [Unknown]
  - Drug delivery system malfunction [Unknown]
  - Device issue [Unknown]
  - Off label use [Unknown]
  - Product dose omission issue [Unknown]
